FAERS Safety Report 4980675-9 (Version None)
Quarter: 2006Q2

REPORT INFORMATION
  Report Type: 
  Country: None (occurrence: None)
  Receive Date: 20060424
  Receipt Date: 20050324
  Transmission Date: 20061013
  Serious: Yes (Hospitalization, Disabling, Other)
  Sender: FDA-Public Use
  Company Number: US-MERCK-0503USA04629

PATIENT
  Age: 49 Year
  Sex: Female
  Weight: 59 kg

DRUGS (7)
  1. VIOXX [Suspect]
     Indication: FIBROMYALGIA
     Route: 048
     Dates: start: 19990101, end: 20040615
  2. VIOXX [Suspect]
     Route: 048
     Dates: start: 19990101, end: 20040615
  3. VIOXX [Suspect]
     Route: 048
     Dates: start: 19990101, end: 20040615
  4. VIOXX [Suspect]
     Indication: ARTHRITIS
     Route: 048
     Dates: start: 19990101, end: 20040615
  5. VIOXX [Suspect]
     Route: 048
     Dates: start: 19990101, end: 20040615
  6. VIOXX [Suspect]
     Route: 048
     Dates: start: 19990101, end: 20040615
  7. TYLENOL (CAPLET) [Concomitant]
     Route: 065

REACTIONS (14)
  - ANGINA PECTORIS [None]
  - ANGINA UNSTABLE [None]
  - ANXIETY [None]
  - BACK PAIN [None]
  - CARDIAC DISORDER [None]
  - CHEST PAIN [None]
  - CORONARY ARTERY DISEASE [None]
  - CORONARY ARTERY STENOSIS [None]
  - DEPRESSION [None]
  - GLAUCOMA [None]
  - MYOCARDIAL INFARCTION [None]
  - OVERDOSE [None]
  - PELVIC PAIN [None]
  - VENTRICULAR EXTRASYSTOLES [None]
